FAERS Safety Report 13069659 (Version 1)
Quarter: 2016Q4

REPORT INFORMATION
  Report Type: Report from Study
  Country: US (occurrence: US)
  Receive Date: 20161228
  Receipt Date: 20161228
  Transmission Date: 20170207
  Serious: Yes (Other)
  Sender: FDA-Public Use
  Company Number: US-JNJFOC-20161127685

PATIENT
  Sex: Female

DRUGS (10)
  1. IMBRUVICA [Suspect]
     Active Substance: IBRUTINIB
     Indication: MANTLE CELL LYMPHOMA
     Route: 048
     Dates: start: 20160818
  2. TRAZODONE [Concomitant]
     Active Substance: TRAZODONE HYDROCHLORIDE
  3. ASPIRIN (E.C.) [Concomitant]
     Active Substance: ASPIRIN
  4. POTASSIUM [Concomitant]
     Active Substance: POTASSIUM
  5. XANAX [Concomitant]
     Active Substance: ALPRAZOLAM
  6. TOCOPHEROL [Concomitant]
     Active Substance: TOCOPHEROL
  7. ZINC [Concomitant]
     Active Substance: ZINC\ZINC CHLORIDE
  8. FUROSEMIDE. [Concomitant]
     Active Substance: FUROSEMIDE
  9. MELATONIN [Concomitant]
     Active Substance: MELATONIN
  10. ZOLOFT [Concomitant]
     Active Substance: SERTRALINE HYDROCHLORIDE

REACTIONS (5)
  - Weight increased [Unknown]
  - Pleural effusion [Unknown]
  - Renal neoplasm [Unknown]
  - Platelet count decreased [Unknown]
  - Pericardial effusion [Unknown]
